FAERS Safety Report 17693647 (Version 1)
Quarter: 2020Q2

REPORT INFORMATION
  Report Type: Spontaneous
  Country: US (occurrence: US)
  Receive Date: 20200422
  Receipt Date: 20200422
  Transmission Date: 20200714
  Serious: Yes (Death)
  Sender: FDA-Public Use
  Company Number: None

PATIENT
  Age: 72 Year
  Sex: Male
  Weight: 81.54 kg

DRUGS (15)
  1. OMEPRAZOLE. [Concomitant]
     Active Substance: OMEPRAZOLE
  2. FLAXSEED OIL MAX [Concomitant]
  3. CALQUENCE [Suspect]
     Active Substance: ACALABRUTINIB
     Indication: MANTLE CELL LYMPHOMA
     Route: 048
     Dates: start: 20200211, end: 20200422
  4. SIMVASTATIN. [Concomitant]
     Active Substance: SIMVASTATIN
  5. MOMETASONE [Concomitant]
     Active Substance: MOMETASONE
  6. LORATADINE. [Concomitant]
     Active Substance: LORATADINE
  7. ASCORBIC ACID. [Concomitant]
     Active Substance: ASCORBIC ACID
  8. ALLOPURINOL. [Concomitant]
     Active Substance: ALLOPURINOL
  9. TAMSULOSIN [Concomitant]
     Active Substance: TAMSULOSIN
  10. ASPIRIN EC [Concomitant]
     Active Substance: ASPIRIN
  11. SERTRALINE [Concomitant]
     Active Substance: SERTRALINE HYDROCHLORIDE
  12. MIRTAZAPINE. [Concomitant]
     Active Substance: MIRTAZAPINE
  13. METOPROLOL TARTRATE. [Concomitant]
     Active Substance: METOPROLOL TARTRATE
  14. VENCLEXTA [Concomitant]
     Active Substance: VENETOCLAX
  15. VITAMIN D3 [Concomitant]
     Active Substance: CHOLECALCIFEROL

REACTIONS (1)
  - Death [None]

NARRATIVE: CASE EVENT DATE: 20200422
